FAERS Safety Report 9538666 (Version 2)
Quarter: 2013Q4

REPORT INFORMATION
  Report Type: Report from Study
  Country: AT (occurrence: AT)
  Receive Date: 20130920
  Receipt Date: 20131122
  Transmission Date: 20140711
  Serious: Yes (Other)
  Sender: FDA-Public Use
  Company Number: PHHY2013AT104453

PATIENT
  Sex: 0

DRUGS (1)
  1. GLIVEC [Suspect]
     Dosage: 400 MG, UNK

REACTIONS (5)
  - Sarcoidosis [Unknown]
  - Pituitary-dependent Cushing^s syndrome [Unknown]
  - Oedema peripheral [Unknown]
  - Leukocytosis [Unknown]
  - Drug intolerance [Unknown]
